FAERS Safety Report 9290218 (Version 5)
Quarter: 2013Q3

REPORT INFORMATION
  Report Type: Spontaneous
  Country: JP (occurrence: JP)
  Receive Date: 20130515
  Receipt Date: 20130724
  Transmission Date: 20140515
  Serious: Yes (Death, Hospitalization)
  Sender: FDA-Public Use
  Company Number: JP-JNJFOC-20130505105

PATIENT
  Age: 83 Year
  Sex: Male

DRUGS (26)
  1. TRAMCET [Suspect]
     Indication: PAIN
     Dosage: 1 PER 1 DAY
     Route: 048
     Dates: start: 20130418
  2. TRAMCET [Suspect]
     Indication: PAIN
     Dosage: 1 PER 1 DAY
     Route: 048
     Dates: start: 20130424, end: 20130424
  3. TRAMCET [Suspect]
     Indication: PAIN
     Dosage: 1 PER 1 DAY
     Route: 048
     Dates: start: 20130313, end: 20130317
  4. DAIKENTYUTO [Concomitant]
     Indication: CONSTIPATION
     Route: 048
  5. LYRICA [Concomitant]
     Indication: PAIN
     Dosage: 1 PER 1 DAY
     Route: 048
     Dates: start: 201301, end: 201304
  6. TRYPTANOL [Concomitant]
     Indication: INSOMNIA
     Dosage: 1PER 1 DAY
     Route: 048
  7. ZENASPIRIN [Concomitant]
     Indication: EMPHYSEMA
     Route: 048
  8. ZENASPIRIN [Concomitant]
     Indication: MYOCARDIAL INFARCTION
     Route: 048
  9. PLETAAL [Concomitant]
     Indication: EMPHYSEMA
     Dosage: 1 MG PER 1 DAY
     Route: 048
  10. PLETAAL [Concomitant]
     Indication: MYOCARDIAL INFARCTION
     Dosage: 1 MG PER 1 DAY
     Route: 048
  11. ATORVASTATIN [Concomitant]
     Indication: HYPERCHOLESTEROLAEMIA
     Route: 048
  12. ALFAROL [Concomitant]
     Indication: OSTEOPOROSIS
     Route: 048
  13. NIKORANMART [Concomitant]
     Indication: EMPHYSEMA
     Route: 048
  14. NIKORANMART [Concomitant]
     Indication: MYOCARDIAL INFARCTION
     Route: 048
  15. ZANTAC [Concomitant]
     Indication: GASTRITIS
     Route: 048
  16. PECTITE [Concomitant]
     Indication: EMPHYSEMA
     Route: 048
  17. METHYCOBAL [Concomitant]
     Indication: NEUROPATHY PERIPHERAL
     Route: 048
  18. DIMETICONE [Concomitant]
     Indication: CONSTIPATION
     Route: 048
  19. VASOLAN [Concomitant]
     Indication: MYOCARDIAL INFARCTION
     Route: 048
  20. SPIRIVA [Concomitant]
     Indication: EMPHYSEMA
     Route: 055
  21. SULTANOL [Concomitant]
     Indication: EMPHYSEMA
     Route: 055
  22. NITROPEN [Concomitant]
     Indication: MYOCARDIAL INFARCTION
     Route: 048
  23. SHINLUCK [Concomitant]
     Indication: CONSTIPATION
     Route: 048
  24. MAGMITT [Concomitant]
     Indication: CONSTIPATION
     Route: 048
  25. POLAPREZINC [Concomitant]
     Route: 048
  26. URIEF [Concomitant]
     Route: 048

REACTIONS (9)
  - Septic shock [Fatal]
  - Gastrointestinal necrosis [Fatal]
  - Intestinal ischaemia [Fatal]
  - Ileus paralytic [Not Recovered/Not Resolved]
  - Toxicity to various agents [Recovering/Resolving]
  - Disorientation [Not Recovered/Not Resolved]
  - Loss of consciousness [Not Recovered/Not Resolved]
  - Overdose [Unknown]
  - Treatment noncompliance [Unknown]
